FAERS Safety Report 18430161 (Version 14)
Quarter: 2023Q4

REPORT INFORMATION
  Report Type: Report from Study
  Country: CO (occurrence: CO)
  Receive Date: 20201027
  Receipt Date: 20231221
  Transmission Date: 20240110
  Serious: Yes (Other)
  Sender: FDA-Public Use
  Company Number: CO-TAKEDA-2018TUS031912

PATIENT
  Age: 58 Year
  Sex: Male
  Weight: 93 kg

DRUGS (3)
  1. VEDOLIZUMAB [Suspect]
     Active Substance: VEDOLIZUMAB
     Indication: Colitis ulcerative
     Dosage: 300 MILLIGRAM
     Route: 042
     Dates: start: 20161205
  2. FERROUS SULFATE [Concomitant]
     Active Substance: FERROUS SULFATE
     Dosage: UNK
  3. THIAMINE [Concomitant]
     Active Substance: THIAMINE
     Dosage: UNK

REACTIONS (31)
  - Diarrhoea haemorrhagic [Recovering/Resolving]
  - Haematochezia [Recovering/Resolving]
  - Rectal haemorrhage [Recovering/Resolving]
  - Bleeding varicose vein [Recovering/Resolving]
  - Constipation [Recovering/Resolving]
  - Back pain [Recovering/Resolving]
  - Dyschezia [Recovering/Resolving]
  - Weight increased [Unknown]
  - Dry skin [Recovering/Resolving]
  - Weight decreased [Unknown]
  - Gastrointestinal motility disorder [Recovering/Resolving]
  - Inappropriate schedule of product administration [Unknown]
  - Oedema peripheral [Unknown]
  - Pallor [Unknown]
  - Abdominal pain [Recovering/Resolving]
  - Abdominal distension [Recovering/Resolving]
  - Pruritus [Recovering/Resolving]
  - Abdominal discomfort [Recovering/Resolving]
  - Diarrhoea [Recovering/Resolving]
  - Rash pruritic [Recovering/Resolving]
  - Fall [Recovering/Resolving]
  - Memory impairment [Recovering/Resolving]
  - Productive cough [Unknown]
  - Anxiety [Recovering/Resolving]
  - Limb injury [Recovering/Resolving]
  - Skin ulcer [Recovering/Resolving]
  - Erythema [Recovering/Resolving]
  - Rash [Recovering/Resolving]
  - Pain in extremity [Recovered/Resolved]
  - Influenza [Unknown]
  - Cough [Unknown]

NARRATIVE: CASE EVENT DATE: 20191120
